FAERS Safety Report 9948922 (Version 4)
Quarter: 2014Q3

REPORT INFORMATION
  Report Type: Spontaneous
  Country: US (occurrence: US)
  Receive Date: 20140304
  Receipt Date: 20140811
  Transmission Date: 20150326
  Serious: No
  Sender: FDA-Public Use
  Company Number: US-009507513-1403USA000234

PATIENT
  Age: 50 Year
  Sex: Female

DRUGS (2)
  1. CLARINEX [Suspect]
     Active Substance: DESLORATADINE
     Indication: RHINITIS ALLERGIC
     Dosage: 1 TABLET DAILY, AS NEEDED
     Route: 048
     Dates: start: 200902
  2. ATACAND HCT [Concomitant]
     Active Substance: CANDESARTAN CILEXETIL\HYDROCHLOROTHIAZIDE
     Dosage: UNK
     Route: 048

REACTIONS (4)
  - Oropharyngeal pain [Unknown]
  - Rhinitis [Unknown]
  - Paranasal sinus hypersecretion [Unknown]
  - Drug ineffective [Unknown]

NARRATIVE: CASE EVENT DATE: 20140224
